FAERS Safety Report 11016605 (Version 2)
Quarter: 2015Q2

REPORT INFORMATION
  Report Type: Spontaneous
  Country: US (occurrence: US)
  Receive Date: 20150412
  Receipt Date: 20150525
  Transmission Date: 20150821
  Serious: No
  Sender: FDA-Public Use
  Company Number: US-JNJFOC-20111110314

PATIENT
  Sex: Female
  Weight: 90.72 kg

DRUGS (2)
  1. NORETHISTERONE [Suspect]
     Active Substance: NORETHINDRONE
     Indication: CONTRACEPTION
     Route: 048
     Dates: start: 201110
  2. NORETHISTERONE [Suspect]
     Active Substance: NORETHINDRONE
     Indication: CONTRACEPTION
     Route: 048
     Dates: start: 201012, end: 201110

REACTIONS (1)
  - Metrorrhagia [Not Recovered/Not Resolved]
